FAERS Safety Report 5233892-7 (Version None)
Quarter: 2007Q1

REPORT INFORMATION
  Report Type: 
  Country: None (occurrence: None)
  Receive Date: 20061204
  Receipt Date: 20060817
  Transmission Date: 20070707
  Serious: No
  Sender: FDA-Public Use
  Company Number: 2006-BP-07336BP

PATIENT
  Sex: Male

DRUGS (8)
  1. SPIRIVA [Suspect]
     Indication: DYSPNOEA
     Dosage: 18 MCG (18 MCG,1 IN 1 D),IH
     Route: 055
     Dates: start: 20060527
  2. SPIRIVA [Suspect]
  3. WARFARIN SODIUM [Concomitant]
  4. PLAVIX [Concomitant]
  5. CARDIZEM [Concomitant]
  6. FLOMAX (MORNIFLUMATE) [Concomitant]
  7. ZYRTEC [Concomitant]
  8. LIPITOR [Concomitant]

REACTIONS (1)
  - DRUG INEFFECTIVE [None]
